FAERS Safety Report 8833428 (Version 7)
Quarter: 2014Q1

REPORT INFORMATION
  Report Type: Spontaneous
  Country: US (occurrence: US)
  Receive Date: 20121010
  Receipt Date: 20140117
  Transmission Date: 20141002
  Serious: No
  Sender: FDA-Public Use
  Company Number: US-VERTEX PHARMACEUTICAL INC.-2012-022288

PATIENT
  Age: 61 Year
  Sex: Male
  Weight: 104 kg

DRUGS (6)
  1. INCIVEK [Suspect]
     Indication: HEPATITIS C
     Dosage: 750 MG, TID
     Route: 048
     Dates: start: 20121001, end: 201212
  2. PEGASYS [Suspect]
     Indication: HEPATITIS C
     Dosage: 180 ?G, QW
     Route: 058
     Dates: start: 20121001, end: 201212
  3. RIBAVIRIN [Suspect]
     Indication: HEPATITIS C
     Dosage: 600 MG, BID
     Route: 048
     Dates: start: 20121001, end: 201212
  4. METHADONE [Concomitant]
     Indication: PAIN
     Dosage: 20 MG, UNK
     Route: 048
  5. OXYCODONE [Concomitant]
  6. INSULIN [Concomitant]
     Indication: DIABETES MELLITUS
     Route: 058

REACTIONS (36)
  - Drug dose omission [Recovered/Resolved]
  - Blood count abnormal [Unknown]
  - Blood pressure increased [Recovered/Resolved]
  - Blood glucose increased [Not Recovered/Not Resolved]
  - Dizziness [Not Recovered/Not Resolved]
  - Gait disturbance [Unknown]
  - Pyrexia [Recovered/Resolved]
  - Productive cough [Not Recovered/Not Resolved]
  - Arthralgia [Recovered/Resolved]
  - Oesophagitis [Not Recovered/Not Resolved]
  - Panic attack [Not Recovered/Not Resolved]
  - Anxiety [Recovered/Resolved]
  - Headache [Not Recovered/Not Resolved]
  - Restlessness [Not Recovered/Not Resolved]
  - Bone pain [Recovered/Resolved]
  - Back pain [Not Recovered/Not Resolved]
  - Thinking abnormal [Not Recovered/Not Resolved]
  - Pain in extremity [Not Recovered/Not Resolved]
  - Insomnia [Not Recovered/Not Resolved]
  - Glossodynia [Not Recovered/Not Resolved]
  - Oropharyngeal pain [Not Recovered/Not Resolved]
  - Loose tooth [Not Recovered/Not Resolved]
  - Hyperhidrosis [Not Recovered/Not Resolved]
  - Throat irritation [Not Recovered/Not Resolved]
  - Feeling abnormal [Recovered/Resolved]
  - Gingival pain [Not Recovered/Not Resolved]
  - Dandruff [Not Recovered/Not Resolved]
  - Dry throat [Not Recovered/Not Resolved]
  - Fatigue [Not Recovered/Not Resolved]
  - Asthenia [Not Recovered/Not Resolved]
  - Swelling face [Recovered/Resolved]
  - Skin exfoliation [Not Recovered/Not Resolved]
  - Erythema [Recovered/Resolved]
  - Rash [Not Recovered/Not Resolved]
  - Pruritus [Not Recovered/Not Resolved]
  - Nausea [Not Recovered/Not Resolved]
